FAERS Safety Report 23603381 (Version 2)
Quarter: 2024Q2

REPORT INFORMATION
  Report Type: Spontaneous
  Country: CN (occurrence: CN)
  Receive Date: 20240307
  Receipt Date: 20240423
  Transmission Date: 20240716
  Serious: Yes (Hospitalization, Other)
  Sender: FDA-Public Use
  Company Number: CN-NOVOPROD-1181915

PATIENT
  Age: 80 Year
  Sex: Male
  Weight: 75 kg

DRUGS (1)
  1. INSULIN ASPART [Suspect]
     Active Substance: INSULIN ASPART
     Indication: Type 2 diabetes mellitus
     Dosage: 34 IU, QD (18 U IN THE MORNING AND 16 U IN THE EVENING)

REACTIONS (4)
  - Nephrolithiasis [Unknown]
  - Device failure [Recovered/Resolved]
  - Blood glucose increased [Unknown]
  - Product storage error [Unknown]
